FAERS Safety Report 7725703-2 (Version None)
Quarter: 2011Q3

REPORT INFORMATION
  Report Type: 
  Country: None (occurrence: None)
  Receive Date: 20110902
  Receipt Date: 20110823
  Transmission Date: 20111222
  Serious: Yes (Other)
  Sender: FDA-Public Use
  Company Number: GB-US-EMD SERONO, INC.-7076863

PATIENT
  Sex: Male

DRUGS (10)
  1. REBIF [Suspect]
     Dates: start: 20091209, end: 20110201
  2. BACLOFEN [Concomitant]
  3. FEXOFENADINE HCL [Concomitant]
  4. VITAMIN B-12 [Concomitant]
  5. PROVIGIL [Concomitant]
  6. CITILOPRAM [Concomitant]
  7. PREGABALIN [Concomitant]
  8. MOVIPREP [Concomitant]
  9. PREGABALIN [Concomitant]
  10. REBIF [Suspect]
     Indication: PRODUCT USED FOR UNKNOWN INDICATION
     Dates: start: 20060327

REACTIONS (1)
  - NECROSIS [None]
